FAERS Safety Report 9441630 (Version 1)
Quarter: 2013Q3

REPORT INFORMATION
  Report Type: Spontaneous
  Country: NL (occurrence: NL)
  Receive Date: 20130806
  Receipt Date: 20130806
  Transmission Date: 20140515
  Serious: Yes (Death, Hospitalization, Other)
  Sender: FDA-Public Use
  Company Number: NL-PAR PHARMACEUTICAL, INC-2013SCPR006055

PATIENT
  Sex: 0

DRUGS (15)
  1. CIPROFLOXACIN ER [Suspect]
     Indication: RETROPERITONEAL ABSCESS
     Dosage: UNK, UNKNOWN
     Route: 065
  2. METRONIDAZOLE [Suspect]
     Indication: RETROPERITONEAL ABSCESS
     Dosage: UNK, UNKNOWN
     Route: 065
  3. VANCOMYCIN [Suspect]
     Indication: RETROPERITONEAL ABSCESS
     Dosage: UNK, UNKNOWN
     Route: 065
  4. CEFUROXIME [Suspect]
     Indication: RETROPERITONEAL ABSCESS
     Dosage: UNK, UNKNOWN
     Route: 065
  5. PIPERACILLIN/TAZOBACTAM [Suspect]
     Indication: RETROPERITONEAL ABSCESS
     Dosage: UNK, UNKNOWN
     Route: 065
  6. AMOXICILLIN [Suspect]
     Indication: RETROPERITONEAL ABSCESS
     Dosage: UNK, UNKNOWN
     Route: 065
  7. LINEZOLID [Suspect]
     Indication: RETROPERITONEAL ABSCESS
     Dosage: UNK, UNKNOWN
     Route: 065
  8. LINEZOLID [Suspect]
     Indication: ESCHERICHIA INFECTION
  9. COTRIMOXAZOLE [Suspect]
     Indication: RETROPERITONEAL ABSCESS
     Dosage: UNK, UNKNOWN
     Route: 065
  10. COTRIMOXAZOLE [Suspect]
     Indication: ESCHERICHIA INFECTION
  11. CASPOFUNGIN [Suspect]
     Indication: ASPERGILLUS INFECTION
     Dosage: UNK, UNKNOWN
     Route: 065
  12. CLEMASTINE [Concomitant]
     Indication: RETROPERITONEAL ABSCESS
     Dosage: UNK, UNKNOWN
     Route: 065
  13. CLEMASTINE [Concomitant]
     Indication: ESCHERICHIA INFECTION
  14. PREDNISONE [Concomitant]
     Indication: RETROPERITONEAL ABSCESS
     Dosage: UNK, UNKNOWN
     Route: 065
  15. PREDNISONE [Concomitant]
     Indication: ESCHERICHIA INFECTION

REACTIONS (4)
  - Drug reaction with eosinophilia and systemic symptoms [Fatal]
  - Multi-organ failure [Unknown]
  - Acute respiratory distress syndrome [Unknown]
  - Death [Fatal]
